FAERS Safety Report 16465856 (Version 1)
Quarter: 2019Q2

REPORT INFORMATION
  Report Type: Report from Study
  Country: US (occurrence: US)
  Receive Date: 20190621
  Receipt Date: 20190621
  Transmission Date: 20190711
  Serious: Yes (Hospitalization, Other)
  Sender: FDA-Public Use
  Company Number: US-GILEAD-2019-0414669

PATIENT
  Age: 30 Year
  Sex: Female

DRUGS (10)
  1. FLUTICASONE. [Concomitant]
     Active Substance: FLUTICASONE
  2. ALBUTEROL [SALBUTAMOL] [Concomitant]
     Active Substance: ALBUTEROL
  3. PANCREAZE [AMYLASE;LIPASE;PROTEASE] [Concomitant]
  4. DEKA [Concomitant]
  5. PROAIR HFA [Concomitant]
     Active Substance: ALBUTEROL SULFATE
  6. SODICLOR [Concomitant]
  7. AZTREONAM LYSINE [Suspect]
     Active Substance: AZTREONAM LYSINE
     Indication: CYSTIC FIBROSIS
     Dosage: 75 MG, TID 28 DAYS ON, 28 DAYS OFF
     Route: 055
     Dates: start: 20140611
  8. PULMOZYME [Concomitant]
     Active Substance: DORNASE ALFA
  9. VITAMIN D3 [Concomitant]
     Active Substance: CHOLECALCIFEROL
  10. AZITHROMYCIN ANHYDROUS. [Concomitant]
     Active Substance: AZITHROMYCIN ANHYDROUS

REACTIONS (1)
  - Pneumothorax [Unknown]

NARRATIVE: CASE EVENT DATE: 20190531
